FAERS Safety Report 8968113 (Version 1)
Quarter: 2012Q4

REPORT INFORMATION
  Report Type: 
  Country: US (occurrence: US)
  Receive Date: 20121218
  Receipt Date: 20121218
  Transmission Date: 20130627
  Serious: No
  Sender: FDA-Public Use
  Company Number: US-PFIZER INC-2012316504

PATIENT

DRUGS (3)
  1. NORVASC [Suspect]
     Dosage: 5 mg, UNK
  2. LIPITOR [Suspect]
     Dosage: 20 mg, UNK
  3. NEURONTIN [Suspect]
     Dosage: 300 mg, UNK

REACTIONS (1)
  - Hearing impaired [Unknown]
